FAERS Safety Report 7730930-4 (Version None)
Quarter: 2011Q3

REPORT INFORMATION
  Report Type: 
  Country: None (occurrence: None)
  Receive Date: 20110906
  Receipt Date: 20110823
  Transmission Date: 20111222
  Serious: Yes (Other)
  Sender: FDA-Public Use
  Company Number: US-BAYER-2011-079992

PATIENT
  Age: 83 Year
  Sex: Male

DRUGS (6)
  1. CLOPIDOGREL [Suspect]
     Indication: CORONARY ARTERIAL STENT INSERTION
     Dosage: 75 MG, UNK
     Route: 048
  2. ACETYLSALICYLIC ACID SRT [Suspect]
  3. CLOPIDOGREL [Suspect]
     Indication: MYOCARDIAL INFARCTION
  4. ACETYLSALICYLIC ACID SRT [Suspect]
     Indication: ANTICOAGULANT THERAPY
  5. ACETYLSALICYLIC ACID SRT [Suspect]
     Indication: CORONARY ARTERIAL STENT INSERTION
     Dosage: 81 MG, UNK
     Route: 048
  6. CLOPIDOGREL [Suspect]
     Indication: ANTICOAGULANT THERAPY

REACTIONS (2)
  - SKIN FLAP NECROSIS [None]
  - INCISION SITE HAEMORRHAGE [None]
